FAERS Safety Report 8610323-8 (Version None)
Quarter: 2012Q3

REPORT INFORMATION
  Report Type: 
  Country: None (occurrence: None)
  Receive Date: 20120822
  Receipt Date: 20120813
  Transmission Date: 20120928
  Serious: Yes (Other)
  Sender: FDA-Public Use
  Company Number: PHEH2012US014127

PATIENT
  Sex: Male

DRUGS (14)
  1. VITAMIN E [Concomitant]
  2. VITAMINS NOS [Concomitant]
  3. ALLEGRA [Concomitant]
  4. FISH OIL [Concomitant]
  5. DHA [Concomitant]
  6. MULTIVITAMIN [Concomitant]
  7. AFINITOR [Suspect]
     Indication: ASTROCYTOMA, LOW GRADE
     Dosage: 10 MG, UNK
     Route: 048
     Dates: start: 20120709
  8. VIMPAT [Concomitant]
  9. TRILEPTAL [Concomitant]
  10. VITAMIN D [Concomitant]
  11. HYDRA-ZIDE [Concomitant]
  12. KEPPRA [Concomitant]
  13. LISINOPRIL [Concomitant]
  14. VENTOLIN [Concomitant]

REACTIONS (8)
  - DERMAL CYST [None]
  - DIARRHOEA [None]
  - HEADACHE [None]
  - NEOPLASM MALIGNANT [None]
  - SEBACEOUS CARCINOMA [None]
  - STOMATITIS [None]
  - CONVULSION [None]
  - PYREXIA [None]
